FAERS Safety Report 14704060 (Version 1)
Quarter: 2018Q2

REPORT INFORMATION
  Report Type: Spontaneous
  Country: DE (occurrence: DE)
  Receive Date: 20180402
  Receipt Date: 20180402
  Transmission Date: 20180711
  Serious: Yes (Hospitalization)
  Sender: FDA-Public Use
  Company Number: DE-TEVA-2018-DE-875703

PATIENT
  Age: 78 Year
  Sex: Male

DRUGS (10)
  1. PRAMIPEXOL [Suspect]
     Active Substance: PRAMIPEXOLE
     Dosage: 1.05 MILLIGRAM DAILY;
     Route: 065
  2. PAROXETIN [Concomitant]
     Active Substance: PAROXETINE HYDROCHLORIDE
     Indication: ANXIETY
     Dosage: 20 MILLIGRAM DAILY;
  3. PAROXETIN [Concomitant]
     Active Substance: PAROXETINE HYDROCHLORIDE
     Indication: DEPRESSION
  4. L-DOPA/ ENTACAPON (CARBIDOPA\ENTACAPONE\LEVODOPA) [Suspect]
     Active Substance: CARBIDOPA\ENTACAPONE\LEVODOPA
     Dosage: 600 MILLIGRAM DAILY;
     Route: 065
  5. AMANTADIN [Suspect]
     Active Substance: AMANTADINE
     Dosage: 200 MILLIGRAM DAILY;
     Route: 065
  6. ATORVASTATIN [Concomitant]
     Active Substance: ATORVASTATIN
     Indication: CORONARY ARTERY DISEASE
     Dosage: 40 MILLIGRAM DAILY;
  7. ROPINIROL [Suspect]
     Active Substance: ROPINIROLE
     Dosage: 6 MILLIGRAM DAILY;
     Route: 065
  8. TROSPIUMCHLORID [Suspect]
     Active Substance: TROSPIUM CHLORIDE
     Route: 065
  9. ACETYLSALICYLIC ACID [Concomitant]
     Active Substance: ASPIRIN
     Indication: CORONARY ARTERY DISEASE
     Dosage: 100 MILLIGRAM DAILY;
  10. RASAGILIN [Suspect]
     Active Substance: RASAGILINE MESYLATE
     Dosage: 1 MILLIGRAM DAILY;
     Route: 065

REACTIONS (7)
  - Blood creatinine increased [None]
  - Thrombophlebitis superficial [None]
  - Infection [None]
  - Anticholinergic syndrome [Recovering/Resolving]
  - Parkinson^s disease [Unknown]
  - General physical health deterioration [None]
  - Troponin increased [None]
